FAERS Safety Report 4422742-4 (Version None)
Quarter: 2004Q3

REPORT INFORMATION
  Report Type: 
  Country: None (occurrence: None)
  Receive Date: 20040713
  Receipt Date: 20040427
  Transmission Date: 20050211
  Serious: No
  Sender: FDA-Public Use
  Company Number: PHEH2004US04668

PATIENT
  Age: 56 Year
  Sex: Male

DRUGS (2)
  1. ELIDEL [Suspect]
     Indication: LICHEN PLANUS
     Dosage: BID, TOPICAL
     Route: 061
     Dates: start: 20040424, end: 20040426
  2. COUMADIN [Concomitant]

REACTIONS (3)
  - APPLICATION SITE BURNING [None]
  - APPLICATION SITE DRYNESS [None]
  - SKIN FISSURES [None]
